FAERS Safety Report 10169769 (Version 2)
Quarter: 2014Q2

REPORT INFORMATION
  Report Type: Spontaneous
  Country: IT (occurrence: IT)
  Receive Date: 20140513
  Receipt Date: 20140612
  Transmission Date: 20141212
  Serious: Yes (Hospitalization)
  Sender: FDA-Public Use
  Company Number: IT-WATSON-2014-09516

PATIENT
  Age: 30 Year
  Sex: Male

DRUGS (2)
  1. RAMIPRIL (UNKNOWN) [Suspect]
     Indication: DRUG ABUSE
     Dosage: 100 MG, TOTAL
     Route: 048
     Dates: start: 20140329, end: 20140329
  2. SERTRALINE (UNKNOWN) [Suspect]
     Indication: DRUG ABUSE
     Dosage: 1500 MG, TOTAL
     Route: 048
     Dates: start: 20140329, end: 20140329

REACTIONS (2)
  - Drug abuse [Unknown]
  - Psychomotor hyperactivity [Unknown]
